FAERS Safety Report 19280615 (Version 1)
Quarter: 2021Q2

REPORT INFORMATION
  Report Type: Spontaneous
  Country: US (occurrence: US)
  Receive Date: 20210520
  Receipt Date: 20210520
  Transmission Date: 20210717
  Serious: No
  Sender: FDA-Public Use
  Company Number: US-BAUSCH-BL-2021-013707

PATIENT
  Age: 50 Year
  Sex: Female

DRUGS (6)
  1. COVID?19 VACCINE NOS. [Suspect]
     Active Substance: COVID-19 VACCINE NOS
     Indication: PRODUCT USED FOR UNKNOWN INDICATION
     Route: 065
     Dates: start: 20210410
  2. ZYRTEC [Suspect]
     Active Substance: CETIRIZINE HYDROCHLORIDE
     Indication: PRODUCT USED FOR UNKNOWN INDICATION
     Route: 065
     Dates: start: 202104
  3. BENADRYL [Suspect]
     Active Substance: DIPHENHYDRAMINE HYDROCHLORIDE
     Indication: PROPHYLAXIS
     Route: 065
     Dates: start: 2021
  4. PEPCID [Suspect]
     Active Substance: FAMOTIDINE
     Indication: PRODUCT USE IN UNAPPROVED INDICATION
  5. LEVOXYL [Concomitant]
     Active Substance: LEVOTHYROXINE SODIUM
     Indication: PRODUCT USED FOR UNKNOWN INDICATION
     Route: 065
  6. PEPCID [Suspect]
     Active Substance: FAMOTIDINE
     Indication: PROPHYLAXIS
     Route: 065
     Dates: start: 2021

REACTIONS (8)
  - Flushing [Recovered/Resolved]
  - Product use in unapproved indication [Unknown]
  - Rash macular [Not Recovered/Not Resolved]
  - Vertigo [Not Recovered/Not Resolved]
  - Tension headache [Recovered/Resolved]
  - Swelling face [Not Recovered/Not Resolved]
  - Chest discomfort [Recovering/Resolving]
  - Wheezing [Recovering/Resolving]

NARRATIVE: CASE EVENT DATE: 2021
